FAERS Safety Report 7555300-3 (Version None)
Quarter: 2011Q2

REPORT INFORMATION
  Report Type: 
  Country: None (occurrence: None)
  Receive Date: 20110617
  Receipt Date: 20110615
  Transmission Date: 20111010
  Serious: Yes (Death)
  Sender: FDA-Public Use
  Company Number: PHHY2011US51500

PATIENT
  Sex: Female
  Weight: 51.519 kg

DRUGS (2)
  1. RECLAST [Suspect]
     Route: 042
     Dates: start: 20100630
  2. TRICYCLIC ANTIDEPRESSANTS [Concomitant]

REACTIONS (1)
  - CARDIAC FAILURE CONGESTIVE [None]
